FAERS Safety Report 6538854-5 (Version None)
Quarter: 2010Q1

REPORT INFORMATION
  Report Type: 
  Country: None (occurrence: None)
  Receive Date: 20100115
  Receipt Date: 20100108
  Transmission Date: 20100710
  Serious: Yes (Other)
  Sender: FDA-Public Use
  Company Number: CA-JNJFOC-20090403797

PATIENT
  Sex: Male
  Weight: 102.97 kg

DRUGS (7)
  1. REMICADE [Suspect]
     Indication: CROHN'S DISEASE
     Route: 042
     Dates: start: 20060701
  2. METHOTREXATE [Concomitant]
     Route: 048
  3. FOLIC ACID [Concomitant]
  4. CALCIUM [Concomitant]
  5. PREDNISONE [Concomitant]
  6. HALIBUT OIL [Concomitant]
  7. VITAMIN A [Concomitant]

REACTIONS (1)
  - AXILLARY MASS [None]
